FAERS Safety Report 24975948 (Version 1)
Quarter: 2025Q1

REPORT INFORMATION
  Report Type: Spontaneous
  Country: US (occurrence: US)
  Receive Date: 20250217
  Receipt Date: 20250217
  Transmission Date: 20250409
  Serious: No
  Sender: TEVA
  Company Number: US-TEVA-VS-3292846

PATIENT
  Age: 67 Year

DRUGS (1)
  1. CEFACLOR [Suspect]
     Active Substance: CEFACLOR
     Indication: Product used for unknown indication
     Route: 065

REACTIONS (1)
  - Swollen tongue [Unknown]
